FAERS Safety Report 5716931-6 (Version None)
Quarter: 2008Q2

REPORT INFORMATION
  Report Type: 
  Country: None (occurrence: None)
  Receive Date: 20080422
  Receipt Date: 20080414
  Transmission Date: 20081010
  Serious: Yes (Hospitalization)
  Sender: FDA-Public Use
  Company Number: 2008SP006692

PATIENT
  Age: 62 Year
  Sex: Male
  Weight: 80 kg

DRUGS (6)
  1. INTRON A [Suspect]
     Indication: MULTIPLE MYELOMA
     Dosage: 3 MIU; TIW; SC
     Route: 058
     Dates: start: 20080325, end: 20080410
  2. PREDNISOLONE [Suspect]
     Indication: MULTIPLE MYELOMA
     Dosage: 25 MG; TIW; PO
     Route: 048
     Dates: start: 20080325, end: 20080410
  3. ISOPTIN [Concomitant]
  4. BEZALIP [Concomitant]
  5. PANTOPRAZOLE SODIUM [Concomitant]
  6. ATACAND [Concomitant]

REACTIONS (3)
  - COUGH [None]
  - HERPES ZOSTER [None]
  - PYREXIA [None]
